FAERS Safety Report 5663706-2 (Version None)
Quarter: 2008Q1

REPORT INFORMATION
  Report Type: 
  Country: None (occurrence: None)
  Receive Date: 20080307
  Receipt Date: 20080229
  Transmission Date: 20080703
  Serious: Yes (Death)
  Sender: FDA-Public Use
  Company Number: 035-20785-08030037

PATIENT

DRUGS (5)
  1. THALOMID [Suspect]
     Indication: MYELODYSPLASTIC SYNDROME
     Dosage: 100 MG, DAILY; 4 WEEKS PER CYCLE, ORAL
     Route: 048
  2. ARSENIC TRIOXIDE (ARSENIC TRIOXIDE) [Suspect]
     Indication: MYELODYSPLASTIC SYNDROME
     Dosage: 0.2 MG/KG, OVER 3H DAILY X 5D PER WEEK FOR 2 WEEKS, INFUSION
  3. TRETINOIN [Suspect]
     Indication: MYELODYSPLASTIC SYNDROME
     Dosage: 20 MG, TWICE DAILY FOR 2 WEEKS, ORAL
     Route: 048
  4. HOMOHARRINGTONINE (HOMOHARRINGTONINE) [Suspect]
     Indication: MYELODYSPLASTIC SYNDROME
     Dosage: 3 MG, DAILY X5 DAYS
  5. CYTARABINE [Suspect]
     Indication: MYELODYSPLASTIC SYNDROME
     Dosage: 100 MG, DAILY X5 DAYS

REACTIONS (12)
  - ABDOMINAL PAIN [None]
  - ANOREXIA [None]
  - CEREBRAL HAEMORRHAGE [None]
  - DIARRHOEA [None]
  - FLUID RETENTION [None]
  - GASTROINTESTINAL HAEMORRHAGE [None]
  - HEADACHE [None]
  - HEPATIC FUNCTION ABNORMAL [None]
  - LIP DRY [None]
  - NEUROPATHY PERIPHERAL [None]
  - NEUTROPENIA [None]
  - THROMBOCYTOPENIA [None]
